FAERS Safety Report 18169818 (Version 1)
Quarter: 2020Q3

REPORT INFORMATION
  Report Type: Spontaneous
  Country: CA (occurrence: CA)
  Receive Date: 20200819
  Receipt Date: 20200819
  Transmission Date: 20201103
  Serious: Yes (Life-Threatening)
  Sender: FDA-Public Use
  Company Number: CA-ACCORD-195827

PATIENT
  Age: 13 Year
  Weight: 49 kg

DRUGS (16)
  1. PARACETAMOL [Concomitant]
     Active Substance: ACETAMINOPHEN
  2. LORAZEPAM. [Concomitant]
     Active Substance: LORAZEPAM
  3. CISPLATIN. [Suspect]
     Active Substance: CISPLATIN
     Indication: OSTEOSARCOMA
     Dosage: CISPLATIN INJECTION
     Route: 042
  4. DIPHENHYDRAMINE. [Concomitant]
     Active Substance: DIPHENHYDRAMINE
  5. MAGNESIUM [Concomitant]
     Active Substance: MAGNESIUM
  6. DOXORUBICIN [Suspect]
     Active Substance: DOXORUBICIN
     Indication: OSTEOSARCOMA
     Route: 042
  7. DEXAMETHASONE. [Concomitant]
     Active Substance: DEXAMETHASONE
     Dosage: DOSAGE FORM: LIQUID INTRA? ARTICULAR
  8. DIMENHYDRINATE. [Concomitant]
     Active Substance: DIMENHYDRINATE
     Dosage: DOSAGE FORM: LIQUID INTRAVENOUS
  9. FILGRASTIM [Concomitant]
     Active Substance: FILGRASTIM
  10. SULFAMETHOXAZOLE/TRIMETHOPRIM [Concomitant]
     Active Substance: SULFAMETHOXAZOLE\TRIMETHOPRIM
  11. MACROGOL [Concomitant]
     Active Substance: POLYETHYLENE GLYCOLS
  12. APREPITANT. [Concomitant]
     Active Substance: APREPITANT
  13. HEPARIN [Concomitant]
     Active Substance: HEPARIN SODIUM
  14. METOCLOPRAMIDE. [Concomitant]
     Active Substance: METOCLOPRAMIDE
  15. MORPHINE [Concomitant]
     Active Substance: MORPHINE
     Dosage: MORPHINE SULFATE INJECTION USP
  16. ONDANSETRON [Concomitant]
     Active Substance: ONDANSETRON

REACTIONS (4)
  - Aplastic anaemia [Unknown]
  - Febrile neutropenia [Unknown]
  - Pancytopenia [Unknown]
  - Thrombocytopenia [Unknown]
